FAERS Safety Report 13831982 (Version 1)
Quarter: 2017Q3

REPORT INFORMATION
  Report Type: Spontaneous
  Country: US (occurrence: US)
  Receive Date: 20170803
  Receipt Date: 20170803
  Transmission Date: 20171127
  Serious: No
  Sender: FDA-Public Use
  Company Number: US-ROCHE-695748

PATIENT
  Sex: Female
  Weight: 48.6 kg

DRUGS (1)
  1. BONIVA [Suspect]
     Active Substance: IBANDRONATE SODIUM
     Indication: BONE LOSS
     Route: 048

REACTIONS (6)
  - Aphthous ulcer [Not Recovered/Not Resolved]
  - Gingival swelling [Not Recovered/Not Resolved]
  - Anxiety [Unknown]
  - Gingival pain [Not Recovered/Not Resolved]
  - Palpitations [Unknown]
  - Insomnia [Unknown]
